FAERS Safety Report 20695822 (Version 1)
Quarter: 2022Q2

REPORT INFORMATION
  Report Type: Spontaneous
  Country: US (occurrence: US)
  Receive Date: 20220411
  Receipt Date: 20220411
  Transmission Date: 20220720
  Serious: No
  Sender: FDA-Public Use
  Company Number: US-NOVARTISTESTPH-NVSC2022US081028

PATIENT

DRUGS (2)
  1. LETROZOLE [Suspect]
     Active Substance: LETROZOLE
     Indication: Breast cancer
     Dosage: UNK UNK, QD
     Route: 048
  2. IBRANCE [Suspect]
     Active Substance: PALBOCICLIB
     Indication: Breast cancer
     Dosage: 125 MG, QD (FOR 21 DAYS ON AND 7 DAYS OFF IN CONJUNCTION WITH LETROZOLE)
     Route: 048
     Dates: start: 20210928

REACTIONS (4)
  - Haemoglobin abnormal [Unknown]
  - Dry skin [Unknown]
  - Pruritus [Unknown]
  - Urticaria [Unknown]
